FAERS Safety Report 15880467 (Version 3)
Quarter: 2019Q1

REPORT INFORMATION
  Report Type: Spontaneous
  Country: DE (occurrence: DE)
  Receive Date: 20190128
  Receipt Date: 20190325
  Transmission Date: 20190417
  Serious: Yes (Other)
  Sender: FDA-Public Use
  Company Number: DE-NOVOPROD-642285

PATIENT
  Age: 36 Year
  Sex: Male
  Weight: 101 kg

DRUGS (4)
  1. LANTUS [Concomitant]
     Active Substance: INSULIN GLARGINE
     Indication: TYPE 1 DIABETES MELLITUS
     Dosage: UNK
     Route: 065
  2. NOVORAPID [Concomitant]
     Active Substance: INSULIN ASPART
     Indication: PRODUCT USED FOR UNKNOWN INDICATION
     Dosage: UNK ACCORDING TO PLAN, START DATE: YEARS AGO
     Route: 058
  3. LANTUS [Concomitant]
     Active Substance: INSULIN GLARGINE
     Dosage: 25 IU AT 23:00
     Route: 065
     Dates: start: 20181218
  4. TRESIBA [Suspect]
     Active Substance: INSULIN DEGLUDEC
     Indication: TYPE 1 DIABETES MELLITUS
     Dosage: 20 IU, QD
     Route: 058
     Dates: start: 20181218

REACTIONS (2)
  - Road traffic accident [Unknown]
  - Hypoglycaemic unconsciousness [Recovered/Resolved]

NARRATIVE: CASE EVENT DATE: 20181219
